FAERS Safety Report 13458597 (Version 1)
Quarter: 2017Q2

REPORT INFORMATION
  Report Type: Spontaneous
  Country: CN (occurrence: CN)
  Receive Date: 20170419
  Receipt Date: 20170419
  Transmission Date: 20170830
  Serious: Yes (Hospitalization)
  Sender: FDA-Public Use
  Company Number: CN-BRISTOL-MYERS SQUIBB COMPANY-BMS-2017-031788

PATIENT
  Age: 57 Year
  Sex: Male
  Weight: 68 kg

DRUGS (4)
  1. BARACLUDE [Suspect]
     Active Substance: ENTECAVIR
     Indication: HEPATITIS B
     Dosage: 0.5 MG, QD
     Route: 048
     Dates: start: 20170121, end: 20170204
  2. DIISOPROPYLAMINE DICHLOROACETATE [Concomitant]
     Indication: HEPATITIS B
     Dosage: 80 MG, QD
     Route: 042
     Dates: start: 20170108, end: 20170203
  3. POLYENE PHOSPHATIDYLCHOLINE [Concomitant]
     Active Substance: PHOSPHOLIPID
     Indication: HEPATITIS B
     Dosage: 15 ML, QD
     Route: 042
     Dates: start: 20170108, end: 20170203
  4. SILIBININ [Concomitant]
     Active Substance: SILIBININ
     Indication: HEPATITIS B
     Dosage: 1 DF= 2 CAPSULE
     Route: 048
     Dates: start: 20170108, end: 20170204

REACTIONS (1)
  - Liver function test abnormal [Not Recovered/Not Resolved]

NARRATIVE: CASE EVENT DATE: 20170204
